FAERS Safety Report 25089711 (Version 1)
Quarter: 2025Q1

REPORT INFORMATION
  Report Type: Spontaneous
  Country: US (occurrence: None)
  Receive Date: 20250317
  Receipt Date: 20250317
  Transmission Date: 20250408
  Serious: Yes (Hospitalization)
  Sender: FDA-CTU
  Company Number: None

PATIENT
  Age: 64 Year
  Sex: Male
  Weight: 94 kg

DRUGS (5)
  1. OZEMPIC [Suspect]
     Active Substance: SEMAGLUTIDE
     Indication: Diabetes mellitus
  2. METFORMIN [Suspect]
     Active Substance: METFORMIN HYDROCHLORIDE
  3. EMPAGLIFLOZIN [Suspect]
     Active Substance: EMPAGLIFLOZIN
  4. GLIPIZIDE [Suspect]
     Active Substance: GLIPIZIDE
  5. LISINOPRIL [Suspect]
     Active Substance: LISINOPRIL

REACTIONS (5)
  - Liver function test increased [None]
  - Pancreatitis [None]
  - Hepatomegaly [None]
  - Hepatic steatosis [None]
  - Hypotension [None]

NARRATIVE: CASE EVENT DATE: 20250106
